FAERS Safety Report 18927374 (Version 1)
Quarter: 2021Q1

REPORT INFORMATION
  Report Type: Spontaneous
  Country: US (occurrence: US)
  Receive Date: 20210222
  Receipt Date: 20210222
  Transmission Date: 20210420
  Serious: Yes (Other)
  Sender: FDA-Public Use
  Company Number: None

PATIENT
  Age: 67 Year
  Sex: Female

DRUGS (7)
  1. SIMVASTATIN 40 MG [Concomitant]
     Active Substance: SIMVASTATIN
     Dates: start: 20190723
  2. VITAMIN D3 [Concomitant]
     Active Substance: CHOLECALCIFEROL
     Dates: start: 20190723
  3. TYLENOL/COD #3 [Concomitant]
     Dates: start: 20191018
  4. ANASTRAZOLE 1 MG [Concomitant]
     Dates: start: 20210222
  5. BETASERON [Suspect]
     Active Substance: INTERFERON BETA-1B
     Dosage: ?          OTHER FREQUENCY:EVERY OTHER DAY;?
     Route: 058
  6. CLINDAMYCIN 300 MG [Concomitant]
     Active Substance: CLINDAMYCIN PHOSPHATE
     Dates: start: 20191018
  7. ACETAMINOPHEN 500MG [Concomitant]
     Active Substance: ACETAMINOPHEN
     Dates: start: 20190723

REACTIONS (2)
  - Fatigue [None]
  - Chills [None]
